FAERS Safety Report 6665497-5 (Version None)
Quarter: 2010Q2

REPORT INFORMATION
  Report Type: 
  Country: None (occurrence: None)
  Receive Date: 20100402
  Receipt Date: 20100324
  Transmission Date: 20101027
  Serious: Yes (Hospitalization, Other)
  Sender: FDA-Public Use
  Company Number: US-PFIZER INC-2009178529

PATIENT
  Sex: Male
  Weight: 72 kg

DRUGS (4)
  1. SUTENT [Suspect]
     Indication: RENAL CELL CARCINOMA
     Dosage: 50 MG, 1X/DAY
     Route: 048
     Dates: start: 20090201
  2. CELEBREX [Concomitant]
     Dosage: UNK
  3. LORTAB [Concomitant]
     Dosage: UNK
  4. NEXIUM [Concomitant]
     Indication: GASTRIC DISORDER
     Dosage: DAILY

REACTIONS (4)
  - ABDOMINAL PAIN UPPER [None]
  - BLOOD PRESSURE INCREASED [None]
  - OESOPHAGEAL PAIN [None]
  - PALMAR-PLANTAR ERYTHRODYSAESTHESIA SYNDROME [None]
